FAERS Safety Report 8646865 (Version 3)
Quarter: 2013Q4

REPORT INFORMATION
  Report Type: Spontaneous
  Country: US (occurrence: US)
  Receive Date: 20120703
  Receipt Date: 20131230
  Transmission Date: 20140711
  Serious: Yes (Other)
  Sender: FDA-Public Use
  Company Number: US-BAYER-2012-064309

PATIENT
  Age: 18 Year
  Sex: Female
  Weight: 81.63 kg

DRUGS (6)
  1. YAZ [Suspect]
     Indication: CONTRACEPTION
     Dosage: UNK
     Dates: start: 20080718, end: 200907
  2. YAZ [Suspect]
     Indication: ACNE
  3. BENADRYL [Concomitant]
     Indication: MULTIPLE ALLERGIES
     Dosage: 1 PILL, DAILY
  4. IBUPROFEN [Concomitant]
     Indication: ANALGESIC THERAPY
  5. LORAZEPAM [Concomitant]
     Dosage: 0.5 MG ONE OR TWO DAILY, AS NEEDED
     Route: 048
     Dates: start: 20080325, end: 20090616
  6. BUDEPRION [Concomitant]
     Dosage: 300 MG EVERY MORNING
     Route: 048
     Dates: start: 20080325, end: 20100118

REACTIONS (5)
  - Cholelithiasis [None]
  - Cholecystitis acute [None]
  - Injury [None]
  - Pain [None]
  - Abdominal pain [None]
